FAERS Safety Report 12791476 (Version 1)
Quarter: 2016Q3

REPORT INFORMATION
  Report Type: Spontaneous
  Country: IT (occurrence: IT)
  Receive Date: 20160929
  Receipt Date: 20160929
  Transmission Date: 20161109
  Serious: Yes (Hospitalization)
  Sender: FDA-Public Use
  Company Number: IT-BAYER-2016-185110

PATIENT
  Age: 38 Year
  Sex: Male

DRUGS (2)
  1. AULIN [Suspect]
     Active Substance: NIMESULIDE
     Indication: HEADACHE
     Dosage: 100 MG, QD
     Route: 048
     Dates: start: 20160808, end: 20160811
  2. ASPIRINA [Suspect]
     Active Substance: ASPIRIN
     Indication: HEADACHE
     Dosage: 1000 MG, QD
     Route: 048
     Dates: start: 20160808, end: 20160811

REACTIONS (4)
  - Pallor [Unknown]
  - Hyperhidrosis [Unknown]
  - Haematemesis [Unknown]
  - Duodenal ulcer [Unknown]

NARRATIVE: CASE EVENT DATE: 20160811
